FAERS Safety Report 6449616-1 (Version None)
Quarter: 2009Q4

REPORT INFORMATION
  Report Type: 
  Country: None (occurrence: None)
  Receive Date: 20091120
  Receipt Date: 20091109
  Transmission Date: 20100525
  Serious: Yes (Other)
  Sender: FDA-Public Use
  Company Number: US-PFIZER INC-2009296784

PATIENT
  Sex: Female

DRUGS (1)
  1. DILANTIN [Suspect]
     Dosage: UNK

REACTIONS (4)
  - DRUG INTOLERANCE [None]
  - DRUG LEVEL DECREASED [None]
  - WEIGHT DECREASED [None]
  - WEIGHT INCREASED [None]
